FAERS Safety Report 10846679 (Version 1)
Quarter: 2015Q1

REPORT INFORMATION
  Report Type: Not Available
  Country: US (occurrence: US)
  Receive Date: 20150220
  Receipt Date: 20150220
  Transmission Date: 20150721
  Serious: Yes (Other)
  Sender: FDA-Public Use
  Company Number: US-CELGENE-163-21880-13125339

PATIENT

DRUGS (5)
  1. DEXAMETHASONE. [Suspect]
     Active Substance: DEXAMETHASONE
     Indication: LYMPHOMA
     Route: 041
  2. DEXAMETHASONE. [Suspect]
     Active Substance: DEXAMETHASONE
     Indication: MANTLE CELL LYMPHOMA
  3. REVLIMID [Suspect]
     Active Substance: LENALIDOMIDE
     Indication: MANTLE CELL LYMPHOMA
  4. REVLIMID [Suspect]
     Active Substance: LENALIDOMIDE
     Indication: LYMPHOMA
     Dosage: 10 MILLIGRAM
     Route: 048
  5. RITUXIMAB [Suspect]
     Active Substance: RITUXIMAB
     Indication: LYMPHOMA
     Route: 041

REACTIONS (28)
  - Hypophosphataemia [Unknown]
  - Neutropenia [Unknown]
  - Fatigue [Unknown]
  - Rash [Unknown]
  - Weight decreased [Unknown]
  - Dysgeusia [Unknown]
  - Hypokalaemia [Unknown]
  - Upper respiratory tract infection [Unknown]
  - Transaminases increased [Unknown]
  - Pneumonitis [Unknown]
  - Pulmonary embolism [Unknown]
  - Erythema [Unknown]
  - Constipation [Unknown]
  - Anaemia [Unknown]
  - Abdominal pain [Unknown]
  - Tumour flare [Unknown]
  - Pneumonia [Unknown]
  - Insomnia [Unknown]
  - Cough [Unknown]
  - Myalgia [Unknown]
  - Disease progression [Unknown]
  - Diarrhoea [Unknown]
  - Thrombocytopenia [Unknown]
  - Pruritus [Unknown]
  - Muscle spasms [Unknown]
  - Nausea [Unknown]
  - Gastrooesophageal reflux disease [Unknown]
  - Neuropathy peripheral [Unknown]
